FAERS Safety Report 23428808 (Version 1)
Quarter: 2024Q1

REPORT INFORMATION
  Report Type: Spontaneous
  Country: AR (occurrence: AR)
  Receive Date: 20240122
  Receipt Date: 20240122
  Transmission Date: 20240410
  Serious: Yes (Other)
  Sender: FDA-Public Use
  Company Number: AR-PFIZER INC-PV202400008269

PATIENT
  Age: 82 Year
  Sex: Female

DRUGS (1)
  1. SUTENT [Suspect]
     Active Substance: SUNITINIB MALATE
     Indication: Rheumatoid arthritis
     Dosage: 37.5 MG, CYCLIC, EVERY 45 DAYS
     Dates: start: 20210603

REACTIONS (3)
  - Device related infection [Not Recovered/Not Resolved]
  - Off label use [Unknown]
  - Off label use [Unknown]
